FAERS Safety Report 9858418 (Version 2)
Quarter: 2014Q2

REPORT INFORMATION
  Report Type: Spontaneous
  Country: IT (occurrence: IT)
  Receive Date: 20140131
  Receipt Date: 20140429
  Transmission Date: 20141212
  Serious: Yes (Hospitalization)
  Sender: FDA-Public Use
  Company Number: IT-TEVA-457014ISR

PATIENT
  Age: 80 Year
  Sex: Female
  Weight: 73 kg

DRUGS (5)
  1. AMOXICILLIN TRIHYDRATE/POTASSIUM CLAVULANATE [Suspect]
     Indication: CELLULITIS
     Dosage: 3 G DAILY
     Route: 048
     Dates: start: 20131223, end: 20140102
  2. SOLOSA 30 COMPRESSE 2 MG [Concomitant]
     Indication: DIABETES MELLITUS
     Dosage: 2 MG
     Route: 048
     Dates: start: 20130101, end: 20140113
  3. NOOTROPIL - 1200 MG COMPRESSE RIVESTITE CON FILM [Concomitant]
     Indication: PRODUCT USED FOR UNKNOWN INDICATION
     Dosage: 120 MG
  4. METFORMIN HYDROCHLORIDE [Concomitant]
     Indication: DIABETES MELLITUS
     Dosage: 1000 MG
     Route: 048
     Dates: start: 20130101, end: 20130113
  5. PERINDOPRIL [Concomitant]
     Indication: PRODUCT USED FOR UNKNOWN INDICATION
     Dosage: 4 MG

REACTIONS (3)
  - Lip ulceration [Recovered/Resolved]
  - Toxic skin eruption [Recovered/Resolved]
  - Skin exfoliation [Recovered/Resolved]
